FAERS Safety Report 7957703-1 (Version None)
Quarter: 2011Q4

REPORT INFORMATION
  Report Type: 
  Country: None (occurrence: None)
  Receive Date: 20111205
  Receipt Date: 20111129
  Transmission Date: 20120403
  Serious: Yes (Hospitalization, Other)
  Sender: FDA-Public Use
  Company Number: PHHY2009JP11218

PATIENT
  Sex: Male
  Weight: 59 kg

DRUGS (10)
  1. TASIGNA [Suspect]
     Dosage: 800 MG, QD
     Route: 048
     Dates: start: 20090413, end: 20090619
  2. DIOVAN [Concomitant]
     Dosage: 160 MG, UNK
     Route: 048
     Dates: start: 20080101
  3. TASIGNA [Suspect]
     Indication: CHRONIC MYELOID LEUKAEMIA
     Dosage: 800 MG, QD
     Route: 048
     Dates: start: 20090319, end: 20090323
  4. LASIX [Concomitant]
     Dosage: 40 MG, UNK
     Route: 048
     Dates: start: 20080101
  5. INSULIN HUMAN [Concomitant]
     Dosage: 14 IU, UNK
     Route: 042
     Dates: start: 20080101
  6. AMIODARONE HCL [Concomitant]
     Dosage: 200 MG
     Route: 048
     Dates: start: 20080101
  7. ASPIRIN [Concomitant]
     Dosage: 100 MG, UNK
     Route: 048
     Dates: start: 20080101
  8. WARFARIN SODIUM [Concomitant]
     Dosage: 1.9 MG, UNK
     Route: 048
     Dates: start: 20080101
  9. CARVEDILOL [Concomitant]
     Dosage: 10 MG, UNK
     Route: 048
     Dates: start: 20080101
  10. EPLERENONE [Concomitant]
     Dosage: 50 MG, UNK
     Route: 048
     Dates: start: 20080101

REACTIONS (6)
  - PANCYTOPENIA [None]
  - BRONCHITIS [None]
  - DIABETES MELLITUS [None]
  - RENAL IMPAIRMENT [None]
  - JAUNDICE [None]
  - ALTERED STATE OF CONSCIOUSNESS [None]
